FAERS Safety Report 18363575 (Version 1)
Quarter: 2020Q4

REPORT INFORMATION
  Report Type: Spontaneous
  Country: US (occurrence: US)
  Receive Date: 20201009
  Receipt Date: 20201009
  Transmission Date: 20210114
  Serious: Yes (Other)
  Sender: FDA-Public Use
  Company Number: US-VERICEL-US-VCEL-20-003051

PATIENT
  Age: 39 Year
  Sex: Female

DRUGS (1)
  1. MACI [Suspect]
     Active Substance: AUTOLOGOUS CULTURED CHONDROCYTES\SUS SCROFA COLLAGEN
     Indication: CARTILAGE INJURY
     Dosage: 1 DOSAGE FORM, SINGLE
     Route: 050
     Dates: start: 20200805, end: 20200805

REACTIONS (3)
  - Fall [Recovering/Resolving]
  - Arthroscopy [Unknown]
  - Graft delamination [Recovering/Resolving]

NARRATIVE: CASE EVENT DATE: 20200924
